FAERS Safety Report 10255185 (Version 1)
Quarter: 2014Q2

REPORT INFORMATION
  Report Type: Spontaneous
  Country: US (occurrence: None)
  Receive Date: 20140522
  Receipt Date: 20140522
  Transmission Date: 20141212
  Serious: No
  Sender: FDA-Public Use
  Company Number: 1000054428

PATIENT
  Age: 78 Year
  Sex: Male

DRUGS (9)
  1. TUDORZA PRESSAIR (ACLIDINIUM BROMIDE) (400 MICROGRAM, POWDER) [Suspect]
     Indication: CHRONIC OBSTRUCTIVE PULMONARY DISEASE
     Dosage: 800 UG (400 UG, 2 IN 1)
     Route: 055
     Dates: start: 2013
  2. QUETIAPINE [Concomitant]
  3. IRON [Concomitant]
  4. AMLODIPINE [Concomitant]
  5. LOSARTAN [Concomitant]
  6. METFORMIN [Concomitant]
  7. CITALOPRAM (CITALOPRAM HYDROBROMIDE) [Concomitant]
  8. ATORVASTATIN [Concomitant]
  9. ASPIRIN (ACETYLSALICYLIC ACID) [Concomitant]

REACTIONS (2)
  - Weight increased [None]
  - Insomnia [None]
